FAERS Safety Report 9027356 (Version 3)
Quarter: 2013Q3

REPORT INFORMATION
  Report Type: Spontaneous
  Country: US (occurrence: US)
  Receive Date: 20130123
  Receipt Date: 20130826
  Transmission Date: 20140515
  Serious: Yes (Hospitalization)
  Sender: FDA-Public Use
  Company Number: US-ROXANE LABORATORIES, INC.-2013-RO-00112RO

PATIENT
  Age: 40 Year
  Sex: Male

DRUGS (31)
  1. DEXAMETHASONE [Suspect]
  2. SPRYCEL [Suspect]
     Indication: GLIOBLASTOMA MULTIFORME
     Route: 048
     Dates: start: 20121206
  3. BEVACIZUMAB [Suspect]
     Indication: GLIOBLASTOMA MULTIFORME
     Route: 042
     Dates: start: 20121206
  4. ACETAMINOPHEN [Concomitant]
  5. ALBUTEROL [Concomitant]
  6. ALPRAZOLAM [Concomitant]
  7. AMBIEN [Concomitant]
  8. AMPHOTERICIN [Concomitant]
  9. AZITHROMYCIN [Concomitant]
  10. CEFTRIAXONE [Concomitant]
  11. FENTANYL [Concomitant]
  12. FLUCONAZOLE [Concomitant]
  13. HEPARIN [Concomitant]
     Route: 042
  14. LIDOCAINE [Concomitant]
  15. MIDAZOLAM [Concomitant]
  16. NYSTATIN [Concomitant]
  17. PANTOPRAZOLE [Concomitant]
  18. POTASSIUM CHLORIDE [Concomitant]
  19. PRIMAXIN [Concomitant]
  20. PROPOFOL [Concomitant]
  21. REMERON [Concomitant]
  22. SODIUM CHLORIDE [Concomitant]
  23. TUBERCULIN [Concomitant]
  24. VANCOMYCIN [Concomitant]
  25. XYLOCAIN/EPINEPHRINE [Concomitant]
  26. ZOSYN [Concomitant]
  27. ENOXAPARIN [Concomitant]
  28. PERCOCET [Concomitant]
  29. CLINDAMYCIN [Concomitant]
  30. CLOTRIMAZOLE [Concomitant]
  31. AUGMENTIN [Concomitant]

REACTIONS (6)
  - Pyrexia [Recovered/Resolved with Sequelae]
  - Pneumonitis [Recovered/Resolved with Sequelae]
  - Embolism [Recovered/Resolved with Sequelae]
  - Pneumonia [Recovered/Resolved with Sequelae]
  - Oral candidiasis [Unknown]
  - Dermatitis acneiform [Unknown]
